FAERS Safety Report 17092948 (Version 1)
Quarter: 2019Q4

REPORT INFORMATION
  Report Type: Spontaneous
  Country: DK (occurrence: DK)
  Receive Date: 20191129
  Receipt Date: 20191129
  Transmission Date: 20200122
  Serious: Yes (Hospitalization)
  Sender: FDA-Public Use
  Company Number: DK-TEVA-2019-DK-1143186

PATIENT
  Age: 58 Year
  Sex: Female

DRUGS (3)
  1. VAGIFEM [Concomitant]
     Active Substance: ESTRADIOL
     Indication: HORMONE THERAPY
     Dosage: STENGTH : 10 ?G
     Route: 067
     Dates: start: 20190906
  2. ATORVASTATIN ^TEVA^ [Suspect]
     Active Substance: ATORVASTATIN
     Indication: HYPERCHOLESTEROLAEMIA
     Dosage: STRENGTH: 40MG
     Route: 048
     Dates: start: 20191007
  3. LOSARTANKALIUM ^TEVA^ [Suspect]
     Active Substance: LOSARTAN
     Indication: HYPERTENSION
     Dosage: STRENGTH   50MG
     Route: 048
     Dates: start: 20191007

REACTIONS (10)
  - C-reactive protein increased [Recovering/Resolving]
  - Alanine aminotransferase increased [Unknown]
  - Back pain [Recovering/Resolving]
  - Influenza like illness [Recovering/Resolving]
  - Abdominal discomfort [Recovering/Resolving]
  - Hepatitis [Recovering/Resolving]
  - Neck pain [Recovering/Resolving]
  - Pyrexia [Recovering/Resolving]
  - Blood bilirubin increased [Unknown]
  - Periportal oedema [Unknown]

NARRATIVE: CASE EVENT DATE: 201905
